FAERS Safety Report 8842187 (Version 1)
Quarter: 2012Q4

REPORT INFORMATION
  Report Type: Spontaneous
  Country: US (occurrence: None)
  Receive Date: 20121015
  Receipt Date: 20121015
  Transmission Date: 20130627
  Serious: Yes (Hospitalization)
  Sender: FDA-Public Use
  Company Number: None

PATIENT
  Age: 66 Year
  Sex: Female

DRUGS (1)
  1. PANITUMUMAB [Suspect]
     Dates: start: 20120604

REACTIONS (2)
  - Oedema peripheral [None]
  - Pain in extremity [None]
